FAERS Safety Report 5360509-3 (Version None)
Quarter: 2007Q2

REPORT INFORMATION
  Report Type: 
  Country: None (occurrence: None)
  Receive Date: 20070618
  Receipt Date: 20070608
  Transmission Date: 20071010
  Serious: Yes (Death)
  Sender: FDA-Public Use
  Company Number: B0474451A

PATIENT
  Age: 72 Year
  Sex: Male

DRUGS (9)
  1. AVANDAMET [Suspect]
     Dosage: 8MG PER DAY
     Route: 048
  2. ASPIRIN [Concomitant]
  3. RAMIPRIL [Concomitant]
  4. GLICLAZIDE [Concomitant]
  5. ATENOLOL [Concomitant]
  6. ATORVASTATIN CALCIUM [Concomitant]
  7. AMLODIPINE [Concomitant]
  8. OMEPRAZOLE [Concomitant]
  9. METFORMIN HCL [Concomitant]

REACTIONS (3)
  - CORONARY ARTERY BYPASS [None]
  - DEATH [None]
  - MYOCARDIAL INFARCTION [None]
